FAERS Safety Report 8494773-9 (Version None)
Quarter: 2012Q2

REPORT INFORMATION
  Report Type: 
  Country: None (occurrence: None)
  Receive Date: 20120628
  Receipt Date: 20120614
  Transmission Date: 20120825
  Serious: Yes (Death, Hospitalization, Other)
  Sender: FDA-Public Use
  Company Number: CL-429-2012

PATIENT
  Age: 67 Year
  Sex: Female

DRUGS (2)
  1. PROPOFOL [Suspect]
     Indication: CONVULSION
  2. MIDAZOLAM HCL [Suspect]
     Indication: CONVULSION

REACTIONS (7)
  - PNEUMONIA [None]
  - BLOOD PH DECREASED [None]
  - AUTONOMIC NERVOUS SYSTEM IMBALANCE [None]
  - HAEMORRHAGE [None]
  - THROMBOCYTOPENIA [None]
  - HYPOTHERMIA [None]
  - DRUG INTERACTION [None]
